FAERS Safety Report 12897036 (Version 1)
Quarter: 2016Q4

REPORT INFORMATION
  Report Type: Spontaneous
  Country: US (occurrence: US)
  Receive Date: 20161028
  Receipt Date: 20161028
  Transmission Date: 20170207
  Serious: Yes (Other)
  Sender: FDA-Public Use
  Company Number: None

PATIENT
  Age: 45 Year
  Sex: Male
  Weight: 108.45 kg

DRUGS (5)
  1. AMLODIPINE [Concomitant]
     Active Substance: AMLODIPINE BESYLATE
  2. IBUPROFEN. [Concomitant]
     Active Substance: IBUPROFEN
  3. METFORMIN [Concomitant]
     Active Substance: METFORMIN HYDROCHLORIDE
  4. LISINOPRIL. [Concomitant]
     Active Substance: LISINOPRIL
  5. MIFEPRISTONE CORCEPT THERAPEUTICS [Suspect]
     Active Substance: MIFEPRISTONE
     Indication: CHORIORETINOPATHY
     Route: 048
     Dates: start: 20161016, end: 20161022

REACTIONS (2)
  - Rash pruritic [None]
  - Dyspnoea [None]

NARRATIVE: CASE EVENT DATE: 20161022
